FAERS Safety Report 20309939 (Version 1)
Quarter: 2022Q1

REPORT INFORMATION
  Report Type: Spontaneous
  Country: US (occurrence: None)
  Receive Date: 20220107
  Receipt Date: 20220107
  Transmission Date: 20220424
  Serious: Yes (Other)
  Sender: FDA-Public Use
  Company Number: None

PATIENT
  Sex: Female

DRUGS (31)
  1. HUMIRA [Suspect]
     Active Substance: ADALIMUMAB
     Dosage: OTHER QUANTITY : 40/0.4 MG/ML;?FREQUENCY : EVERY OTHER WEEK;?
     Route: 058
     Dates: start: 20210911
  2. AIMOVIG [Concomitant]
     Active Substance: ERENUMAB-AOOE
  3. ALBUTEROL AER HFA [Concomitant]
  4. ALENDRONATE [Concomitant]
     Active Substance: ALENDRONATE SODIUM
  5. ALPRAZOLAM [Concomitant]
     Active Substance: ALPRAZOLAM
  6. AZITHROMYCIN [Concomitant]
     Active Substance: AZITHROMYCIN
  7. BACLOFEN [Concomitant]
     Active Substance: BACLOFEN
  8. CEVIMELINE [Concomitant]
     Active Substance: CEVIMELINE
  9. CYMBALTA [Concomitant]
     Active Substance: DULOXETINE HYDROCHLORIDE
  10. DEXAMETHASONE [Concomitant]
     Active Substance: DEXAMETHASONE
  11. DICLOFENAC [Concomitant]
     Active Substance: DICLOFENAC
  12. DULOXETINE [Concomitant]
     Active Substance: DULOXETINE
  13. ELIQUIS [Concomitant]
     Active Substance: APIXABAN
  14. ENBREL SRCLK [Concomitant]
  15. FAMOTIDINE [Concomitant]
     Active Substance: FAMOTIDINE
  16. FLUTICASONE [Concomitant]
     Active Substance: FLUTICASONE
  17. GABAPENTIN [Concomitant]
     Active Substance: GABAPENTIN
  18. ACETAMINOPHEN\HYDROCODONE [Concomitant]
     Active Substance: ACETAMINOPHEN\HYDROCODONE
  19. HYDROXYCHLOROQUINE [Concomitant]
     Active Substance: HYDROXYCHLOROQUINE
  20. LEFLUNOMIDE [Concomitant]
     Active Substance: LEFLUNOMIDE
  21. METHYLPR ACE [Concomitant]
  22. OXYCARBAZEPIN [Concomitant]
  23. OXYBUTYNIN [Concomitant]
     Active Substance: OXYBUTYNIN
  24. PRAZOSIN HYDROCHLORIDE [Concomitant]
     Active Substance: PRAZOSIN HYDROCHLORIDE
  25. PREDNISONE [Concomitant]
     Active Substance: PREDNISONE
  26. QUETIAPINE [Concomitant]
     Active Substance: QUETIAPINE
  27. SEROQUEL [Concomitant]
     Active Substance: QUETIAPINE FUMARATE
  28. TOPIRAMATE [Concomitant]
     Active Substance: TOPIRAMATE
  29. TRAMADOL HCL [Concomitant]
     Active Substance: TRAMADOL HYDROCHLORIDE
  30. XANAX XR [Concomitant]
     Active Substance: ALPRAZOLAM
  31. ZOFRAN [Concomitant]
     Active Substance: ONDANSETRON HYDROCHLORIDE

REACTIONS (1)
  - Seizure [None]
